FAERS Safety Report 9269600 (Version 1)
Quarter: 2013Q2

REPORT INFORMATION
  Report Type: Report from Study
  Country: US (occurrence: US)
  Receive Date: 20130503
  Receipt Date: 20130503
  Transmission Date: 20140414
  Serious: Yes (Hospitalization)
  Sender: FDA-Public Use
  Company Number: US-ABBOTT-13P-163-1082236-00

PATIENT
  Age: 54 Year
  Sex: Male
  Weight: 113.5 kg

DRUGS (9)
  1. HUMIRA [Suspect]
     Indication: CROHN^S DISEASE
     Dates: start: 2008, end: 201208
  2. HUMIRA [Suspect]
     Dates: start: 201211
  3. LEVOTHYROXINE [Concomitant]
     Indication: HYPOTHYROIDISM
  4. DELZICOL [Concomitant]
     Indication: CROHN^S DISEASE
  5. LYRICA [Concomitant]
     Indication: PAIN
  6. IMMURAN [Concomitant]
     Indication: CROHN^S DISEASE
  7. OMEPRAZOLE [Concomitant]
     Indication: GASTROOESOPHAGEAL REFLUX DISEASE
  8. AMITRIPTYLINE [Concomitant]
     Indication: DEPRESSION
  9. METFORMIN [Concomitant]
     Indication: DIABETES MELLITUS

REACTIONS (1)
  - Intestinal obstruction [Recovered/Resolved]
